FAERS Safety Report 9949896 (Version 2)
Quarter: 2014Q1

REPORT INFORMATION
  Report Type: Spontaneous
  Country: BE (occurrence: BE)
  Receive Date: 20140304
  Receipt Date: 20140324
  Transmission Date: 20141002
  Serious: Yes (Other)
  Sender: FDA-Public Use
  Company Number: BE-ELI_LILLY_AND_COMPANY-BE201402008371

PATIENT
  Age: 50 Year
  Sex: Female

DRUGS (2)
  1. ZYPADHERA [Suspect]
     Indication: SCHIZOPHRENIA
     Dosage: 405 MG, 2/M
     Route: 030
  2. SERLAIN [Concomitant]
     Dosage: 100MG/DAY

REACTIONS (2)
  - Injection site abscess [Recovered/Resolved]
  - Prescribed overdose [Unknown]
